FAERS Safety Report 23902649 (Version 2)
Quarter: 2024Q3

REPORT INFORMATION
  Report Type: Spontaneous
  Country: US (occurrence: None)
  Receive Date: 20240527
  Receipt Date: 20240805
  Transmission Date: 20241017
  Serious: No
  Sender: ASTRAZENECA
  Company Number: 2024A101661

PATIENT
  Sex: Male

DRUGS (2)
  1. BYDUREON BCISE [Suspect]
     Active Substance: EXENATIDE
     Dosage: 2.0MG UNKNOWN
  2. BYETTA [Suspect]
     Active Substance: EXENATIDE

REACTIONS (6)
  - Injection site urticaria [Unknown]
  - Disease progression [Unknown]
  - Weight decreased [Unknown]
  - Contusion [Unknown]
  - Device issue [Unknown]
  - Wrong technique in device usage process [Unknown]
